FAERS Safety Report 9364574 (Version 2)
Quarter: 2013Q3

REPORT INFORMATION
  Report Type: Spontaneous
  Country: FR (occurrence: FR)
  Receive Date: 20130624
  Receipt Date: 20130708
  Transmission Date: 20140515
  Serious: Yes (Death, Other)
  Sender: FDA-Public Use
  Company Number: PHHY2013FR064274

PATIENT
  Age: 39 Year
  Sex: Female

DRUGS (10)
  1. RITALINE LP [Suspect]
     Indication: OFF LABEL USE
     Dosage: 400 MG, DAILY
  2. TEMESTA [Concomitant]
     Indication: SLEEP DISORDER
     Dosage: 2.5 MG, UNK
     Route: 048
  3. CLOPIXOL [Concomitant]
     Indication: SLEEP DISORDER
     Dosage: 3 DRP, QD
     Route: 048
  4. IMOVANE [Concomitant]
     Indication: SLEEP DISORDER
     Dosage: 1.5 DF, QD
     Route: 048
  5. PROTHIADEN [Concomitant]
     Indication: SLEEP DISORDER
     Dosage: 7.5 MG, QD
     Route: 048
  6. METADONA [Concomitant]
  7. IMOVAN [Concomitant]
  8. SEROPLEX [Concomitant]
  9. SKENAN [Concomitant]
  10. ROHYPNOL [Concomitant]

REACTIONS (5)
  - Endocarditis [Fatal]
  - Staphylococcal sepsis [Fatal]
  - Overdose [Unknown]
  - Incorrect route of drug administration [Unknown]
  - Drug level above therapeutic [Unknown]
